FAERS Safety Report 12927625 (Version 2)
Quarter: 2017Q2

REPORT INFORMATION
  Report Type: Spontaneous
  Country: US (occurrence: US)
  Receive Date: 20161109
  Receipt Date: 20170412
  Transmission Date: 20170830
  Serious: Yes (Life-Threatening, Other)
  Sender: FDA-Public Use
  Company Number: US-MYLANLABS-2016M1047122

PATIENT

DRUGS (1)
  1. EPIPEN [Suspect]
     Active Substance: EPINEPHRINE
     Indication: HYPERSENSITIVITY
     Dosage: 0.3 MG/ML, ONCE
     Route: 030
     Dates: start: 20161029, end: 20161029

REACTIONS (2)
  - Injection site laceration [Recovering/Resolving]
  - Device failure [Recovered/Resolved]

NARRATIVE: CASE EVENT DATE: 20161029
